FAERS Safety Report 10094198 (Version 1)
Quarter: 2014Q2

REPORT INFORMATION
  Report Type: Spontaneous
  Country: US (occurrence: None)
  Receive Date: 20140418
  Receipt Date: 20140418
  Transmission Date: 20141212
  Serious: Yes (Hospitalization)
  Sender: FDA-Public Use
  Company Number: 001711043A

PATIENT
  Age: 15 Year
  Sex: Female

DRUGS (3)
  1. X-OUT WASH-IN TREATMENT [Suspect]
     Indication: ACNE
     Dosage: ONCE DERMAL
     Dates: start: 20140123
  2. CLONIDINE [Concomitant]
  3. ADDERALL [Concomitant]

REACTIONS (5)
  - Swelling face [None]
  - Erythema [None]
  - Urticaria [None]
  - Urticaria [None]
  - Heart rate increased [None]
